FAERS Safety Report 24201209 (Version 1)
Quarter: 2024Q3

REPORT INFORMATION
  Report Type: Spontaneous
  Country: US (occurrence: US)
  Receive Date: 20240812
  Receipt Date: 20240812
  Transmission Date: 20241016
  Serious: Yes (Other)
  Sender: BAXTER
  Company Number: US-BAXTER-2024BAX022619

PATIENT
  Age: 76 Year
  Sex: Female
  Weight: 98.4 kg

DRUGS (12)
  1. CYCLOPHOSPHAMIDE [Suspect]
     Active Substance: CYCLOPHOSPHAMIDE
     Indication: B-cell type acute leukaemia
     Dosage: 150 MG/M2 CYCLIC (CYCLE 1, 3: 150 MG/M2, SCHEDULE: EVERY 12 HRS X 6 DOSES, DAYS 1-3
     Route: 042
  2. MESNA [Suspect]
     Active Substance: MESNA
     Indication: B-cell type acute leukaemia
     Dosage: UNK
     Route: 065
  3. INOTUZUMAB OZOGAMICIN [Suspect]
     Active Substance: INOTUZUMAB OZOGAMICIN
     Indication: B-cell type acute leukaemia
     Dosage: CYCLIC (CYCLE 1: TOTAL 0.9 MG/M2 (0.6 MG/M2 D2, 0.3 MG/M2 D8))
     Route: 042
     Dates: start: 20230612
  4. INOTUZUMAB OZOGAMICIN [Suspect]
     Active Substance: INOTUZUMAB OZOGAMICIN
     Dosage: CYCLIC (CYCLES 2, 3, 4: TOTAL 0.6 MG/M2 (0.3 MG/M2 D2, 0.3 MG/M2 D8)), ONGOING
     Route: 042
     Dates: start: 20230710
  5. METHYLPREDNISOLONE ACETATE [Suspect]
     Active Substance: METHYLPREDNISOLONE ACETATE
     Indication: B-cell type acute leukaemia
     Dosage: 50 MG CYCLIC (CYCLE 2, 4: 50 MG, SCHEDULE: EVERY 12 HRS X 6 DOSES, DAYS 1-3)
     Route: 042
  6. CYTARABINE [Suspect]
     Active Substance: CYTARABINE
     Indication: B-cell type acute leukaemia
     Dosage: 100 MG CYCLIC (CYCLE 1-2: 100 MG, SCHEDULE: DAY 2, DAY 8)
     Route: 037
  7. CYTARABINE [Suspect]
     Active Substance: CYTARABINE
     Dosage: 500 MG/M2 CYCLIC (CYCLE 2, 4: DOSE: 0.5 G/M2/DOSE, SCHEDULE: EVERY 12 HRS X 4 DOSES, DAYS 2, 3)
     Route: 042
  8. METHOTREXATE SODIUM [Suspect]
     Active Substance: METHOTREXATE SODIUM
     Indication: B-cell type acute leukaemia
     Dosage: 12 MG CYCLIC (CYCLE 1-2: 12 MG, SCHEDULE: DAY 2, DAY 8)
     Route: 037
  9. METHOTREXATE SODIUM [Suspect]
     Active Substance: METHOTREXATE SODIUM
     Dosage: 250 MG/M2 CYCLIC (CYCLE 2, 4: 250 MG/M2, SCHEDULE: DAY 1)
     Route: 042
  10. RITUXIMAB [Suspect]
     Active Substance: RITUXIMAB
     Indication: B-cell type acute leukaemia
     Dosage: 375 MG/M2 CYCLIC (CYCLE 1-4: 375 MG/M2, SCHEDULE: DAY 2, DAY 8)
     Route: 042
  11. VINCRISTINE SULFATE [Suspect]
     Active Substance: VINCRISTINE SULFATE
     Indication: B-cell type acute leukaemia
     Dosage: 2 MG CYCLIC (CYCLE 1, 3: 2 MG, SCHEDULE: DAY 1, DAY 8)
     Route: 042
  12. DEXAMETHASONE [Suspect]
     Active Substance: DEXAMETHASONE
     Indication: B-cell type acute leukaemia
     Dosage: 20 MG CYCLIC (CYCLE 1, 3: 20 MG, ROUTE: IV OR PO, SCHEDULE: DAYS 1-4, DAYS 11-14)
     Route: 050

REACTIONS (1)
  - Platelet count decreased [Recovered/Resolved]

NARRATIVE: CASE EVENT DATE: 20230719
